FAERS Safety Report 9291495 (Version 1)
Quarter: 2013Q2

REPORT INFORMATION
  Report Type: Spontaneous
  Country: US (occurrence: US)
  Receive Date: 20130515
  Receipt Date: 20130515
  Transmission Date: 20140414
  Serious: Yes (Other)
  Sender: FDA-Public Use
  Company Number: US-TEVA-404589USA

PATIENT
  Age: 42 Year
  Sex: Female

DRUGS (4)
  1. QVAR [Suspect]
     Indication: ASTHMA
     Dates: start: 20130408, end: 2013
  2. QVAR [Suspect]
     Indication: HYPERSENSITIVITY
  3. QNASL [Suspect]
     Indication: ASTHMA
     Dates: start: 20130408, end: 2013
  4. QNASL [Suspect]
     Indication: HYPERSENSITIVITY

REACTIONS (2)
  - Candida infection [Unknown]
  - Ageusia [Unknown]
